FAERS Safety Report 6154185-X (Version None)
Quarter: 2009Q2

REPORT INFORMATION
  Report Type: 
  Country: None (occurrence: None)
  Receive Date: 20090414
  Receipt Date: 20090409
  Transmission Date: 20091009
  Serious: Yes (Death, Other)
  Sender: FDA-Public Use
  Company Number: US-ABBOTT-09P-163-0558287-00

PATIENT
  Sex: Male

DRUGS (1)
  1. TRICOR [Suspect]
     Indication: HYPERTRIGLYCERIDAEMIA
     Dates: start: 20060101, end: 20080101

REACTIONS (1)
  - PANCREATIC CARCINOMA [None]
